FAERS Safety Report 6212009-6 (Version None)
Quarter: 2009Q2

REPORT INFORMATION
  Report Type: 
  Country: None (occurrence: None)
  Receive Date: 20090602
  Receipt Date: 20090520
  Transmission Date: 20091009
  Serious: Yes (Other)
  Sender: FDA-Public Use
  Company Number: US-PFIZER INC-2009216429

PATIENT

DRUGS (1)
  1. DIFLUCAN [Suspect]
     Indication: COCCIDIOIDOMYCOSIS

REACTIONS (2)
  - HAEMATURIA [None]
  - NEPHROLITHIASIS [None]
